FAERS Safety Report 6844863-9 (Version None)
Quarter: 2010Q3

REPORT INFORMATION
  Report Type: 
  Country: None (occurrence: None)
  Receive Date: 20100715
  Receipt Date: 20100422
  Transmission Date: 20110219
  Serious: Yes (Hospitalization)
  Sender: FDA-Public Use
  Company Number: US-PURDUE-USA-2010-0042052

PATIENT
  Age: 76 Year
  Sex: Female

DRUGS (8)
  1. OXYCODONE HCL [Suspect]
     Indication: PRODUCT USED FOR UNKNOWN INDICATION
  2. DASATINIB [Suspect]
     Indication: BREAST CANCER METASTATIC
     Dosage: 70 MG, DAILY
     Dates: start: 20091030, end: 20100105
  3. PROTONIX [Suspect]
     Indication: PRODUCT USED FOR UNKNOWN INDICATION
  4. XANAX [Suspect]
     Indication: PRODUCT USED FOR UNKNOWN INDICATION
  5. EFFEXOR [Suspect]
     Indication: PRODUCT USED FOR UNKNOWN INDICATION
  6. SYNTHROID [Suspect]
     Indication: PRODUCT USED FOR UNKNOWN INDICATION
  7. MIRALAX [Suspect]
     Indication: PRODUCT USED FOR UNKNOWN INDICATION
  8. AMBIEN [Suspect]
     Indication: PRODUCT USED FOR UNKNOWN INDICATION

REACTIONS (1)
  - URINARY TRACT INFECTION [None]
